FAERS Safety Report 13376785 (Version 1)
Quarter: 2017Q1

REPORT INFORMATION
  Report Type: Spontaneous
  Country: FR (occurrence: FR)
  Receive Date: 20170328
  Receipt Date: 20170328
  Transmission Date: 20170429
  Serious: Yes (Death, Life-Threatening)
  Sender: FDA-Public Use
  Company Number: FR-AUROBINDO-AUR-APL-2017-31436

PATIENT
  Age: 67 Year
  Sex: Male

DRUGS (2)
  1. IPRATROPIUM ARROW NEBULISER SOLUTION 0.5/2MG/ML [Suspect]
     Active Substance: IPRATROPIUM
     Indication: ASTHMATIC CRISIS
     Dosage: UNK
     Route: 055
     Dates: start: 20161230
  2. SALBUTAMOL [Suspect]
     Active Substance: ALBUTEROL
     Indication: ASTHMATIC CRISIS
     Dosage: UNK
     Route: 055
     Dates: start: 20161230

REACTIONS (5)
  - Eye movement disorder [Recovered/Resolved]
  - Bronchospasm paradoxical [Recovered/Resolved]
  - Hypoxic-ischaemic encephalopathy [Fatal]
  - Cardio-respiratory arrest [Recovered/Resolved]
  - Urinary incontinence [Recovered/Resolved]

NARRATIVE: CASE EVENT DATE: 20161231
